FAERS Safety Report 22522996 (Version 3)
Quarter: 2023Q2

REPORT INFORMATION
  Report Type: Report from Study
  Country: US (occurrence: US)
  Receive Date: 20230606
  Receipt Date: 20230627
  Transmission Date: 20230722
  Serious: Yes (Hospitalization, Other)
  Sender: FDA-Public Use
  Company Number: US-002147023-NVSC2023US125334

PATIENT
  Sex: Female
  Weight: 119.73 kg

DRUGS (5)
  1. TREPROSTINIL [Suspect]
     Active Substance: TREPROSTINIL
     Indication: Pulmonary arterial hypertension
     Dosage: 24 NG/KG/MIN, CONT
     Route: 042
     Dates: start: 20230518
  2. TORSEMIDE [Suspect]
     Active Substance: TORSEMIDE
     Indication: Fluid retention
     Dosage: UNK
     Route: 065
  3. SILDENAFIL [Suspect]
     Active Substance: SILDENAFIL
     Indication: Product used for unknown indication
     Dosage: UNK
     Route: 065
  4. AMBRISENTAN [Concomitant]
     Active Substance: AMBRISENTAN
     Indication: Product used for unknown indication
     Dosage: UNK
     Route: 065
  5. TADALAFIL [Concomitant]
     Active Substance: TADALAFIL
     Indication: Product used for unknown indication
     Dosage: UNK
     Route: 065

REACTIONS (22)
  - Kidney infection [Unknown]
  - Sepsis [Unknown]
  - Myocardial infarction [Unknown]
  - Pulmonary arterial hypertension [Unknown]
  - Catheter site extravasation [Unknown]
  - Vascular device infection [Unknown]
  - Cardiac failure [Unknown]
  - Coma [Unknown]
  - Sluggishness [Unknown]
  - Malaise [Unknown]
  - Epistaxis [Unknown]
  - Pyrexia [Unknown]
  - Fluid retention [Unknown]
  - Gastrooesophageal reflux disease [Unknown]
  - Dehydration [Unknown]
  - Tremor [Recovered/Resolved]
  - Balance disorder [Unknown]
  - Oedema [Unknown]
  - Arthralgia [Unknown]
  - Headache [Unknown]
  - Pain in jaw [Unknown]
  - Fatigue [Unknown]
